FAERS Safety Report 4540006-5 (Version None)
Quarter: 2004Q4

REPORT INFORMATION
  Report Type: 
  Country: None (occurrence: None)
  Receive Date: 20041223
  Receipt Date: 20041210
  Transmission Date: 20050328
  Serious: Yes (Other)
  Sender: FDA-Public Use
  Company Number: S04-GER-08107-01

PATIENT
  Age: 34 Year
  Sex: Male

DRUGS (6)
  1. CIPRALEX (ESCITALOPRAM) [Suspect]
     Indication: SCHIZOAFFECTIVE DISORDER
     Dosage: 160 MG QD PO
     Route: 048
     Dates: start: 20040901, end: 20041201
  2. CIPRALEX (ESCITALOPRAM) [Suspect]
     Indication: SCHIZOAFFECTIVE DISORDER
     Dosage: 20 MG QD PO
     Route: 048
     Dates: start: 20030101, end: 20040901
  3. SOLIAN (AMISULPRIDE) [Concomitant]
  4. METHADON (METHADONE) [Concomitant]
  5. DIAZEPAM [Concomitant]
  6. COCAINE [Concomitant]

REACTIONS (7)
  - DRUG ABUSER [None]
  - DRUG EFFECT INCREASED [None]
  - MEDICATION ERROR [None]
  - OVERDOSE [None]
  - RESTLESSNESS [None]
  - SELF-MEDICATION [None]
  - TREATMENT NONCOMPLIANCE [None]
